FAERS Safety Report 13831526 (Version 1)
Quarter: 2017Q3

REPORT INFORMATION
  Report Type: Spontaneous
  Country: GB (occurrence: GB)
  Receive Date: 20170803
  Receipt Date: 20170803
  Transmission Date: 20171127
  Serious: Yes (Disabling)
  Sender: FDA-Public Use
  Company Number: GB-TEVA-791392ACC

PATIENT
  Age: 65 Year
  Sex: Male

DRUGS (1)
  1. SOTALOL. [Suspect]
     Active Substance: SOTALOL
     Route: 048
     Dates: start: 20170613

REACTIONS (3)
  - Discomfort [Unknown]
  - Linear IgA disease [Unknown]
  - Perineal disorder [Recovered/Resolved]

NARRATIVE: CASE EVENT DATE: 20170613
